FAERS Safety Report 6553489-6 (Version None)
Quarter: 2010Q1

REPORT INFORMATION
  Report Type: 
  Country: None (occurrence: None)
  Receive Date: 20100122
  Receipt Date: 20100114
  Transmission Date: 20100710
  Serious: No
  Sender: FDA-Public Use
  Company Number: DSU-2010-00132

PATIENT
  Sex: Female
  Weight: 77.1115 kg

DRUGS (4)
  1. WELCHOL           (COLESEVELAM HYDROCHLORIDE) (625 MILLIGRAM, TABLET) [Suspect]
     Indication: HYPERLIPIDAEMIA
     Dosage: 1875 MG (1875 MG, QD), PER ORAL
     Route: 048
  2. WATER PILL (INGREDIENTS UNKNOWN) (DIURETICS) [Concomitant]
  3. BLOOD PRESSURE MEDICATION (INGREDIENTS UNKNOWN) (ANTIHYPERTENSIVES) [Concomitant]
  4. PLAVIX [Concomitant]

REACTIONS (3)
  - DYSPHAGIA [None]
  - PRODUCT QUALITY ISSUE [None]
  - PRODUCT SIZE ISSUE [None]
